FAERS Safety Report 12007653 (Version 2)
Quarter: 2017Q1

REPORT INFORMATION
  Report Type: Spontaneous
  Country: US (occurrence: US)
  Receive Date: 20160204
  Receipt Date: 20170331
  Transmission Date: 20170428
  Serious: Yes (Hospitalization)
  Sender: FDA-Public Use
  Company Number: US-IMPAX LABORATORIES, INC-2016-IPXL-00114

PATIENT
  Age: 46 Year
  Sex: Male
  Weight: 88 kg

DRUGS (10)
  1. RYTARY [Suspect]
     Active Substance: CARBIDOPA\LEVODOPA
     Dosage: 48.75/195 MG, 4 CAPSULE IN THE MORNING, 3 CAPSULE DURING THE DAY, 4 CAPSULE IN THE EVENING
     Route: 048
  2. RYTARY [Suspect]
     Active Substance: CARBIDOPA\LEVODOPA
     Indication: MULTIPLE SYSTEM ATROPHY
     Dosage: 48.75/195 MG, 2 CAPSULES 4 TIMES DAILY
     Route: 048
     Dates: start: 2015
  3. PARCOPA [Concomitant]
     Active Substance: CARBIDOPA\LEVODOPA
     Indication: MULTIPLE SYSTEM ATROPHY
     Dosage: 1 DF, 1 /DAY
     Route: 065
  4. OMEPRAZOLE. [Concomitant]
     Active Substance: OMEPRAZOLE
     Indication: GASTROOESOPHAGEAL REFLUX DISEASE
     Dosage: UNK
     Route: 065
  5. CARBIDOPA LEVODOPA [Concomitant]
     Active Substance: CARBIDOPA\LEVODOPA
     Indication: MULTIPLE SYSTEM ATROPHY
     Dosage: (25/100 MG), PRN
     Route: 065
  6. AMANTADINE [Concomitant]
     Active Substance: AMANTADINE
     Indication: MULTIPLE SYSTEM ATROPHY
     Dosage: UNK
     Route: 065
  7. FAMOTIDINE. [Concomitant]
     Active Substance: FAMOTIDINE
     Indication: GASTROOESOPHAGEAL REFLUX DISEASE
     Dosage: UNK
     Route: 065
  8. CETIRIZINE [Concomitant]
     Active Substance: CETIRIZINE HYDROCHLORIDE
     Indication: HYPERSENSITIVITY
     Dosage: UNK
     Route: 065
  9. MACROGOL [Concomitant]
     Active Substance: POLYETHYLENE GLYCOLS
     Indication: CONSTIPATION
     Dosage: UNK
     Route: 065
  10. MIRTAZAPINE. [Concomitant]
     Active Substance: MIRTAZAPINE
     Indication: SLEEP DISORDER
     Dosage: UNK
     Route: 065

REACTIONS (5)
  - Pneumonia aspiration [Recovered/Resolved]
  - Drooling [Not Recovered/Not Resolved]
  - Dysphagia [Not Recovered/Not Resolved]
  - Wrong technique in product usage process [Unknown]
  - Off label use [Unknown]

NARRATIVE: CASE EVENT DATE: 2015
